FAERS Safety Report 16951708 (Version 1)
Quarter: 2019Q4

REPORT INFORMATION
  Report Type: Spontaneous
  Country: US (occurrence: US)
  Receive Date: 20191023
  Receipt Date: 20191023
  Transmission Date: 20200122
  Serious: Yes (Other)
  Sender: FDA-Public Use
  Company Number: US-ELI_LILLY_AND_COMPANY-US201910009692

PATIENT
  Sex: Male

DRUGS (1)
  1. HUMATROPE [Suspect]
     Active Substance: SOMATROPIN
     Indication: PRODUCT USED FOR UNKNOWN INDICATION
     Dosage: 3 MG, DAILY
     Route: 058

REACTIONS (5)
  - Crush injury [Unknown]
  - Concussion [Not Recovered/Not Resolved]
  - Lethargy [Not Recovered/Not Resolved]
  - Blepharospasm [Not Recovered/Not Resolved]
  - Confusional state [Not Recovered/Not Resolved]
